FAERS Safety Report 13850646 (Version 1)
Quarter: 2017Q3

REPORT INFORMATION
  Report Type: Spontaneous
  Country: US (occurrence: US)
  Receive Date: 20170809
  Receipt Date: 20170809
  Transmission Date: 20171127
  Serious: No
  Sender: FDA-Public Use
  Company Number: US-GLAXOSMITHKLINE-US2017116739

PATIENT
  Age: 70 Year
  Sex: Female

DRUGS (3)
  1. FLONASE [Suspect]
     Active Substance: FLUTICASONE PROPIONATE
     Indication: NASAL CONGESTION
  2. ZYRTEC [Suspect]
     Active Substance: CETIRIZINE HYDROCHLORIDE
     Indication: INFLUENZA
     Dosage: UNK
  3. FLONASE [Suspect]
     Active Substance: FLUTICASONE PROPIONATE
     Indication: INFLUENZA
     Dosage: UNK

REACTIONS (5)
  - Ageusia [Unknown]
  - Off label use [Unknown]
  - Dyspnoea [Unknown]
  - Anosmia [Unknown]
  - Drug ineffective for unapproved indication [Unknown]
